FAERS Safety Report 6357179-4 (Version None)
Quarter: 2009Q3

REPORT INFORMATION
  Report Type: 
  Country: None (occurrence: None)
  Receive Date: 20090911
  Receipt Date: 20090831
  Transmission Date: 20100115
  Serious: Yes (Hospitalization)
  Sender: FDA-Public Use
  Company Number: 232497K08USA

PATIENT
  Age: 43 Year
  Sex: Female

DRUGS (6)
  1. REBIF [Suspect]
     Indication: MULTIPLE SCLEROSIS
     Dosage: 44 MCG, 3 IN 1 WEEKS, SUBCUTANEOUS
     Route: 058
     Dates: start: 20080325, end: 20080801
  2. ENALAPRIL (ENALAPRIL /00574901/) [Concomitant]
  3. GABAPENTIN [Concomitant]
  4. BACLOFEN [Concomitant]
  5. TIZANIDINE HCL [Concomitant]
  6. ALLEGRA [Concomitant]

REACTIONS (5)
  - BACK PAIN [None]
  - FALL [None]
  - NERVE COMPRESSION [None]
  - OSTEOMYELITIS [None]
  - SPINAL FRACTURE [None]
